FAERS Safety Report 8550015 (Version 2)
Quarter: 2012Q4

REPORT INFORMATION
  Report Type: 
  Country: US (occurrence: US)
  Receive Date: 20120507
  Receipt Date: 20121128
  Transmission Date: 20130627
  Serious: Yes (Disabling, Other)
  Sender: FDA-Public Use
  Company Number: US-ASTRAZENECA-2012SE27919

PATIENT
  Age: 48 Year
  Sex: Male

DRUGS (1)
  1. TOPROL XL [Suspect]
     Route: 048

REACTIONS (24)
  - Skin ulcer [Unknown]
  - Thrombosis [Unknown]
  - Impaired work ability [Unknown]
  - Peripheral ischaemia [Unknown]
  - Leriche syndrome [Unknown]
  - Myocardial infarction [Unknown]
  - Peripheral artery stenosis [Unknown]
  - Arterial occlusive disease [Unknown]
  - Intermittent claudication [Unknown]
  - Skin ulcer [Unknown]
  - Vision blurred [Unknown]
  - Deafness [Unknown]
  - Cough [Unknown]
  - Muscular weakness [Unknown]
  - Hypoaesthesia [Unknown]
  - Paraesthesia [Unknown]
  - Hypertension [Unknown]
  - Coronary artery disease [Unknown]
  - Gastrooesophageal reflux disease [Unknown]
  - Gait disturbance [Unknown]
  - Pallor [Unknown]
  - Head discomfort [Unknown]
  - Musculoskeletal stiffness [Unknown]
  - Kyphosis [Unknown]
